FAERS Safety Report 5704346-6 (Version None)
Quarter: 2008Q2

REPORT INFORMATION
  Report Type: 
  Country: None (occurrence: None)
  Receive Date: 20080411
  Receipt Date: 20080411
  Transmission Date: 20081010
  Serious: Yes (Hospitalization)
  Sender: FDA-Public Use
  Company Number: None

PATIENT
  Sex: Male
  Weight: 56.246 kg

DRUGS (2)
  1. SINGULAIR [Suspect]
     Indication: ASTHMA
     Dates: start: 19970101
  2. SINGULAIR [Suspect]
     Indication: RHINITIS ALLERGIC
     Dates: start: 19970101

REACTIONS (1)
  - SUICIDAL IDEATION [None]
